FAERS Safety Report 17635993 (Version 2)
Quarter: 2020Q2

REPORT INFORMATION
  Report Type: Spontaneous
  Country: PL (occurrence: PL)
  Receive Date: 20200407
  Receipt Date: 20200416
  Transmission Date: 20200713
  Serious: Yes (Death, Hospitalization, Other)
  Sender: FDA-Public Use
  Company Number: PL-VELOXIS PHARMACEUTICALS-2020VELPL-000224

PATIENT
  Age: 63 Year
  Sex: Female

DRUGS (3)
  1. GLUCOCORTICOIDS [Suspect]
     Active Substance: UNSPECIFIED INGREDIENT
     Indication: IMMUNOSUPPRESSANT DRUG THERAPY
     Dosage: UNK
     Route: 065
  2. MYCOPHENOLATE MOFETIL MYLAN [Suspect]
     Active Substance: MYCOPHENOLATE MOFETIL
     Indication: IMMUNOSUPPRESSANT DRUG THERAPY
     Dosage: UNK
     Route: 065
     Dates: start: 201505
  3. ENVARSUS XR [Suspect]
     Active Substance: TACROLIMUS
     Indication: IMMUNOSUPPRESSANT DRUG THERAPY
     Dosage: UNK
     Route: 065
     Dates: start: 201505

REACTIONS (5)
  - Respiratory failure [Fatal]
  - Squamous cell carcinoma of skin [Recovered/Resolved]
  - Keratoacanthoma [Recovered/Resolved]
  - Basal cell carcinoma [Recovered/Resolved]
  - Lung adenocarcinoma [Unknown]

NARRATIVE: CASE EVENT DATE: 201605
